FAERS Safety Report 24982533 (Version 2)
Quarter: 2025Q1

REPORT INFORMATION
  Report Type: Spontaneous
  Country: US (occurrence: US)
  Receive Date: 20250218
  Receipt Date: 20250303
  Transmission Date: 20250408
  Serious: No
  Sender: PFIZER
  Company Number: US-PFIZER INC-202500034996

PATIENT
  Age: 67 Year
  Sex: Female

DRUGS (13)
  1. IBRANCE [Suspect]
     Active Substance: PALBOCICLIB
     Dosage: 125 MG, DAILY 21 DAYS, HOLD FOR 7 DAYS. REPEAT EVERY 28 DAYS
     Route: 048
     Dates: start: 20250202
  2. OMEPRAZOLE [Concomitant]
     Active Substance: OMEPRAZOLE
  3. LORAZEPAM [Concomitant]
     Active Substance: LORAZEPAM
  4. ACETAMINOPHEN\HYDROCODONE [Concomitant]
     Active Substance: ACETAMINOPHEN\HYDROCODONE
  5. HYDROXYZINE HYDROCHLORIDE [Concomitant]
     Active Substance: HYDROXYZINE HYDROCHLORIDE
  6. BUPROPION [Concomitant]
     Active Substance: BUPROPION
  7. ALBUTEROL SULFATE [Concomitant]
     Active Substance: ALBUTEROL SULFATE
  8. ALEVE [Concomitant]
     Active Substance: NAPROXEN SODIUM
  9. CALCIUM\CHOLECALCIFEROL [Concomitant]
     Active Substance: CALCIUM\CHOLECALCIFEROL
  10. PERCOCET [Concomitant]
     Active Substance: ACETAMINOPHEN\OXYCODONE HYDROCHLORIDE
  11. ONDANSETRON HYDROCHLORIDE [Concomitant]
     Active Substance: ONDANSETRON HYDROCHLORIDE
  12. PROCHLORPERAZINE MALEATE [Concomitant]
     Active Substance: PROCHLORPERAZINE MALEATE
  13. ITOVEBI [Concomitant]
     Active Substance: INAVOLISIB

REACTIONS (5)
  - Rash pruritic [Unknown]
  - Gingival pain [Unknown]
  - Decreased appetite [Unknown]
  - Constipation [Unknown]
  - Dry eye [Unknown]
